FAERS Safety Report 5154587-4 (Version None)
Quarter: 2006Q4

REPORT INFORMATION
  Report Type: 
  Country: None (occurrence: None)
  Receive Date: 20061114
  Receipt Date: 20061026
  Transmission Date: 20070319
  Serious: Yes (Life-Threatening, Hospitalization, Disabling)
  Sender: FDA-Public Use
  Company Number: S06-ITA-03575-01

PATIENT
  Age: 91 Year
  Sex: Female

DRUGS (8)
  1. MEMANTINE HCL [Suspect]
     Indication: DEMENTIA ALZHEIMER'S TYPE
     Dosage: 20 MG QD PO
     Route: 048
     Dates: start: 20051025, end: 20051212
  2. HALOPERIDOLE [Suspect]
     Indication: DEMENTIA ALZHEIMER'S TYPE
     Dosage: 8 MG QD PO
     Route: 048
     Dates: start: 20040426, end: 20051205
  3. HALOPERIDOLE [Suspect]
     Indication: DEMENTIA ALZHEIMER'S TYPE
     Dates: start: 20051213
  4. ACEIL SALICILIATE OF LYSINE (ACETYLSALICYLATE LYSINE) [Concomitant]
  5. ENALAPRIL MALEATE [Concomitant]
  6. ACETIL SALICILIC ACID (ACETYLSALICYLIC ACID) [Concomitant]
  7. NITRENDIPINA (NITRENDIPINE) [Concomitant]
  8. DONEPEZIL HCL [Concomitant]

REACTIONS (1)
  - CEREBRAL ISCHAEMIA [None]
